FAERS Safety Report 6430810-0 (Version None)
Quarter: 2009Q4

REPORT INFORMATION
  Report Type: 
  Country: None (occurrence: None)
  Receive Date: 20091106
  Receipt Date: 20091029
  Transmission Date: 20100525
  Serious: Yes (Hospitalization, Other)
  Sender: FDA-Public Use
  Company Number: US-PURDUE-USA-2009-0040822

PATIENT
  Sex: Female

DRUGS (1)
  1. OXYCONTIN [Suspect]
     Indication: PAIN
     Dosage: 30 UNK, UNK
     Route: 048
     Dates: start: 20091009, end: 20091019

REACTIONS (10)
  - DEHYDRATION [None]
  - DIARRHOEA [None]
  - DRUG INEFFECTIVE [None]
  - DRUG REHABILITATION [None]
  - DRUG WITHDRAWAL SYNDROME [None]
  - GASTROENTERITIS VIRAL [None]
  - INTENTIONAL OVERDOSE [None]
  - KIDNEY INFECTION [None]
  - URINARY TRACT INFECTION [None]
  - VOMITING [None]
